FAERS Safety Report 9363063 (Version 1)
Quarter: 2013Q2

REPORT INFORMATION
  Report Type: Spontaneous
  Country: US (occurrence: US)
  Receive Date: 20130624
  Receipt Date: 20130624
  Transmission Date: 20140414
  Serious: No
  Sender: FDA-Public Use
  Company Number: US-PFIZER INC-2013185314

PATIENT
  Age: 75 Year
  Sex: Female
  Weight: 45.35 kg

DRUGS (2)
  1. SERTRALINE HCL [Suspect]
     Indication: ANXIETY
     Dosage: 50 MG, 1X/DAY
     Route: 048
     Dates: start: 20130522
  2. CLONAZEPAM [Concomitant]
     Dosage: 0.5 MG, UNK

REACTIONS (3)
  - Weight decreased [Unknown]
  - Wrong technique in drug usage process [Unknown]
  - Hypersensitivity [Unknown]
